FAERS Safety Report 11927939 (Version 1)
Quarter: 2016Q1

REPORT INFORMATION
  Report Type: Spontaneous
  Country: US (occurrence: US)
  Receive Date: 20160119
  Receipt Date: 20160119
  Transmission Date: 20160526
  Serious: Yes (Other)
  Sender: FDA-Public Use
  Company Number: US-INTERNATIONAL MEDICATION SYSTEMS, LIMITED-1046608

PATIENT
  Age: 43 Year
  Sex: Female
  Weight: 106.82 kg

DRUGS (1)
  1. LIDOCAINE HYDROCHLORIDE. [Suspect]
     Active Substance: LIDOCAINE HYDROCHLORIDE
     Indication: PAIN
     Route: 061

REACTIONS (3)
  - Removal of foreign body [Recovered/Resolved]
  - Foreign body [Recovered/Resolved]
  - Bronchoscopy [Recovered/Resolved]

NARRATIVE: CASE EVENT DATE: 20151218
